FAERS Safety Report 9283470 (Version 1)
Quarter: 2013Q2

REPORT INFORMATION
  Report Type: Spontaneous
  Country: US (occurrence: US)
  Receive Date: 20130510
  Receipt Date: 20130510
  Transmission Date: 20140414
  Serious: No
  Sender: FDA-Public Use
  Company Number: US-GLAXOSMITHKLINE-A1010993A

PATIENT
  Age: 63 Year
  Sex: Female

DRUGS (1)
  1. TYKERB [Suspect]
     Indication: PRODUCT USED FOR UNKNOWN INDICATION
     Dosage: 12500MG PER DAY
     Route: 048
     Dates: start: 20121217, end: 20130107

REACTIONS (9)
  - Diarrhoea [Unknown]
  - Pruritus [Unknown]
  - Vomiting [Unknown]
  - Rash [Unknown]
  - Blood potassium decreased [Unknown]
  - Fatigue [Unknown]
  - Stomatitis [Unknown]
  - Decreased appetite [Unknown]
  - Oral pain [Unknown]
